FAERS Safety Report 8233482-8 (Version None)
Quarter: 2012Q1

REPORT INFORMATION
  Report Type: 
  Country: None (occurrence: None)
  Receive Date: 20120321
  Receipt Date: 20120312
  Transmission Date: 20120608
  Serious: Yes (Other)
  Sender: FDA-Public Use
  Company Number: AUR-APL-2012-01376

PATIENT
  Age: 71 Year
  Sex: Female

DRUGS (13)
  1. PIPERACILLIN AND TAZOBACTAM [Suspect]
     Indication: PRODUCT USED FOR UNKNOWN INDICATION
     Dosage: 4.5 GM (4.5 GM,1 IN 1 D),INTRAVENOUS DRIP
     Route: 041
     Dates: start: 20120221, end: 20120222
  2. ATORAVSTATIN (ATORVASTATIN) [Concomitant]
  3. TEICOPLANIN (TEICOPLANIN) [Concomitant]
  4. NICORANDIL (NICORANDIL) [Concomitant]
  5. CIPROFLOXACIN [Suspect]
     Indication: PRODUCT USED FOR UNKNOWN INDICATION
     Dosage: 1200 MG (600 MG,2 IN 1 D),INTRAVENOUS
     Route: 042
     Dates: start: 20120111, end: 20120206
  6. BISOPROLOL FUMARATE [Concomitant]
  7. MAGNESIUM SULFATE [Concomitant]
  8. FERROUS SULFATE TAB [Concomitant]
  9. LANSOPRAZOLE [Concomitant]
  10. NITROFURANTOIN [Concomitant]
  11. CIPROFLOXACIN [Suspect]
     Indication: PRODUCT USED FOR UNKNOWN INDICATION
     Dosage: 1500 MG (750 MG,2 IN 1 D),ORAL
     Route: 048
     Dates: start: 20120110, end: 20120211
  12. MAGNESIUM L-ASPARTATE HYDROCHLORIDE (MAGNESIUM) [Suspect]
     Indication: HYPOMAGNESAEMIA
     Dosage: 10 MILLIMOL (10 MILLIMOL,1 IN 1 D),ORAL
     Route: 048
     Dates: start: 20120113, end: 20120209
  13. ASPIRIN [Concomitant]

REACTIONS (3)
  - PARAESTHESIA [None]
  - RASH MACULO-PAPULAR [None]
  - RASH PRURITIC [None]
